FAERS Safety Report 8508605 (Version 6)
Quarter: 2014Q1

REPORT INFORMATION
  Report Type: Spontaneous
  Country: US (occurrence: US)
  Receive Date: 20120412
  Receipt Date: 20140321
  Transmission Date: 20141002
  Serious: Yes (Other)
  Sender: FDA-Public Use
  Company Number: US-ASTRAZENECA-2011SE65993

PATIENT
  Age: 60 Year
  Sex: Female
  Weight: 65.3 kg

DRUGS (7)
  1. NEXIUM [Suspect]
     Indication: GASTROOESOPHAGEAL REFLUX DISEASE
     Route: 048
  2. PRILOSEC OTC [Suspect]
     Route: 048
  3. PRILOSEC OTC [Suspect]
     Dosage: 2 TABLETS EVEN
     Route: 048
  4. PEPCID AC [Concomitant]
  5. HYDROCOACETAMINOPHEN [Concomitant]
     Dosage: 10/325
  6. BENZAPRIL [Concomitant]
     Indication: BLOOD PRESSURE ABNORMAL
     Dates: start: 2007
  7. XANAX [Concomitant]
     Indication: ANXIETY

REACTIONS (24)
  - Foot fracture [Unknown]
  - Pneumonia [Unknown]
  - Aphagia [Unknown]
  - Dyspepsia [Unknown]
  - Dyspepsia [Unknown]
  - Abdominal distension [Unknown]
  - Adverse drug reaction [Unknown]
  - Musculoskeletal pain [Unknown]
  - Intervertebral disc degeneration [Unknown]
  - Eczema [Unknown]
  - Weight decreased [Unknown]
  - Activities of daily living impaired [Unknown]
  - Eructation [Unknown]
  - Constipation [Unknown]
  - Malaise [Unknown]
  - Flatulence [Unknown]
  - Nausea [Unknown]
  - Insomnia [Unknown]
  - Abdominal pain upper [Unknown]
  - Diarrhoea [Unknown]
  - Abdominal discomfort [Unknown]
  - Arthralgia [Unknown]
  - Drug ineffective [Unknown]
  - Drug dose omission [Not Recovered/Not Resolved]
